FAERS Safety Report 23991966 (Version 1)
Quarter: 2024Q2

REPORT INFORMATION
  Report Type: Spontaneous
  Country: CN (occurrence: CN)
  Receive Date: 20240620
  Receipt Date: 20240620
  Transmission Date: 20240715
  Serious: Yes (Hospitalization)
  Sender: FDA-Public Use
  Company Number: CN-STRIDES ARCOLAB LIMITED-2024SP006970

PATIENT
  Sex: Male

DRUGS (12)
  1. ETOPOSIDE [Suspect]
     Active Substance: ETOPOSIDE
     Indication: Hepatosplenic T-cell lymphoma
     Dosage: UNK, (CHEMOTHERAPY)
     Route: 065
  2. ETOPOSIDE [Suspect]
     Active Substance: ETOPOSIDE
     Dosage: 100 MILLIGRAM, QD (LYMPHODEPLETING REGIMEN)
     Route: 065
  3. CYCLOPHOSPHAMIDE [Suspect]
     Active Substance: CYCLOPHOSPHAMIDE
     Indication: Hepatosplenic T-cell lymphoma
     Dosage: UNK, (CHEMOTHERAPY)
     Route: 065
  4. CYCLOPHOSPHAMIDE [Suspect]
     Active Substance: CYCLOPHOSPHAMIDE
     Dosage: 300 MILLIGRAM/SQ. METER, (LYMPHODEPLETING REGIMEN)
     Route: 065
  5. DOXORUBICIN HYDROCHLORIDE [Suspect]
     Active Substance: DOXORUBICIN HYDROCHLORIDE
     Indication: Hepatosplenic T-cell lymphoma
     Dosage: UNK, (CHEMOTHERAPY)
     Route: 065
  6. VINDESINE [Suspect]
     Active Substance: VINDESINE
     Indication: Hepatosplenic T-cell lymphoma
     Dosage: UNK, (CHEMOTHERAPY)
     Route: 065
  7. DEXAMETHASONE [Suspect]
     Active Substance: DEXAMETHASONE
     Indication: Hepatosplenic T-cell lymphoma
     Dosage: UNK, (CHEMOTHERAPY)
     Route: 065
  8. IFOSFAMIDE [Suspect]
     Active Substance: IFOSFAMIDE
     Indication: Hepatosplenic T-cell lymphoma
     Dosage: UNK, (CHEMOTHERAPY)
     Route: 065
  9. CISPLATIN [Suspect]
     Active Substance: CISPLATIN
     Indication: Hepatosplenic T-cell lymphoma
     Dosage: UNK, (CHEMOTHERAPY)
     Route: 065
  10. SELINEXOR [Suspect]
     Active Substance: SELINEXOR
     Indication: Hepatosplenic T-cell lymphoma
     Dosage: UNK, (CHEMOTHERAPY)
     Route: 065
  11. FLUDARABINE [Suspect]
     Active Substance: FLUDARABINE PHOSPHATE
     Indication: Hepatosplenic T-cell lymphoma
     Dosage: 30 MILLIGRAM/SQ. METER (LYMPHODEPLETING REGIMEN)
     Route: 065
  12. TOCILIZUMAB [Concomitant]
     Active Substance: TOCILIZUMAB
     Indication: Cytokine release syndrome
     Dosage: UNK
     Route: 065

REACTIONS (2)
  - Hypertransaminasaemia [Unknown]
  - Drug ineffective [Unknown]
